FAERS Safety Report 7501958-4 (Version None)
Quarter: 2011Q2

REPORT INFORMATION
  Report Type: 
  Country: None (occurrence: None)
  Receive Date: 20110525
  Receipt Date: 20110523
  Transmission Date: 20111010
  Serious: Yes (Disabling, Other)
  Sender: FDA-Public Use
  Company Number: US-PFIZER INC-2011110646

PATIENT
  Sex: Male

DRUGS (11)
  1. MYTUSSIN [Concomitant]
     Indication: RESPIRATORY TRACT CONGESTION
     Dosage: UNK
     Dates: start: 20031201, end: 20100101
  2. PIROXICAM [Concomitant]
     Indication: OSTEOARTHRITIS
     Dosage: UNK
     Dates: start: 19981101
  3. CELEBREX [Concomitant]
     Indication: OSTEOARTHRITIS
     Dosage: UNK
     Dates: start: 20060901
  4. CHANTIX [Suspect]
     Indication: TOBACCO ABUSE
     Dosage: 1 MG, UNK
     Dates: start: 20071101, end: 20080101
  5. SYNTHROID [Concomitant]
     Indication: HYPERTHYROIDISM
     Dosage: UNK
     Dates: start: 19981101
  6. LEVOTHYROXINE [Concomitant]
     Indication: THYROID DISORDER
     Dosage: UNK
     Dates: start: 20040801
  7. LISINOPRIL [Concomitant]
     Indication: BLOOD PRESSURE
     Dosage: UNK
     Dates: start: 20050101, end: 20100301
  8. DICLOFENAC [Concomitant]
     Indication: ARTHRITIS
     Dosage: UNK
     Dates: start: 20060101, end: 20100301
  9. CYANOCOBALAMIN [Concomitant]
     Indication: ANAEMIA
     Dosage: UNK
     Dates: start: 19990101
  10. BENZONATATE [Concomitant]
     Indication: COUGH
     Dosage: UNK
     Dates: start: 20060101, end: 20100101
  11. POTASSIUM [Concomitant]
     Indication: BLOOD PRESSURE
     Dosage: UNK
     Dates: start: 20060101

REACTIONS (7)
  - DEPRESSION [None]
  - ANXIETY [None]
  - DIARRHOEA [None]
  - SUICIDAL IDEATION [None]
  - VISION BLURRED [None]
  - MENTAL DISORDER [None]
  - ABNORMAL DREAMS [None]
